FAERS Safety Report 9963657 (Version 1)
Quarter: 2014Q1

REPORT INFORMATION
  Report Type: Report from Study
  Country: US (occurrence: US)
  Receive Date: 20140305
  Receipt Date: 20140305
  Transmission Date: 20141002
  Serious: No
  Sender: FDA-Public Use
  Company Number: US-ABBVIE-13P-163-1118743-00

PATIENT
  Age: 48 Year
  Sex: Male

DRUGS (6)
  1. HUMIRA [Suspect]
     Indication: RHEUMATOID ARTHRITIS
     Dates: start: 20130613
  2. IBUPROFEN [Concomitant]
     Indication: PRODUCT USED FOR UNKNOWN INDICATION
     Dosage: 3 TIMES A DAY AS NEEDED
  3. TRAMADOL [Concomitant]
     Indication: PRODUCT USED FOR UNKNOWN INDICATION
     Dosage: EVERY 6 HOURS AS NEEDED
  4. ZANTADINE [Concomitant]
     Indication: MUSCLE RELAXANT THERAPY
     Dosage: EVERY 6 HOURS AS NEEDED
  5. PLAQUENIL [Concomitant]
     Indication: PRODUCT USED FOR UNKNOWN INDICATION
  6. FOLIC ACID [Concomitant]
     Indication: RHEUMATOID ARTHRITIS

REACTIONS (4)
  - Joint swelling [Not Recovered/Not Resolved]
  - Joint stiffness [Not Recovered/Not Resolved]
  - Erythema [Not Recovered/Not Resolved]
  - Joint warmth [Not Recovered/Not Resolved]
